FAERS Safety Report 15001533 (Version 2)
Quarter: 2018Q2

REPORT INFORMATION
  Report Type: Spontaneous
  Country: US (occurrence: US)
  Receive Date: 20180612
  Receipt Date: 20180615
  Transmission Date: 20180711
  Serious: Yes (Other)
  Sender: FDA-Public Use
  Company Number: US-PFIZER INC-2018233165

PATIENT
  Age: 62 Year
  Sex: Female

DRUGS (1)
  1. LIPITOR [Suspect]
     Active Substance: ATORVASTATIN CALCIUM
     Dosage: UNK
     Dates: start: 201707

REACTIONS (6)
  - Glomerular filtration rate decreased [Unknown]
  - Urine analysis abnormal [Unknown]
  - Renal impairment [Unknown]
  - Thyroid function test abnormal [Unknown]
  - Blood creatinine increased [Unknown]
  - Myalgia [Unknown]
